FAERS Safety Report 21756249 (Version 2)
Quarter: 2022Q4

REPORT INFORMATION
  Report Type: Spontaneous
  Country: CA (occurrence: CA)
  Receive Date: 20221220
  Receipt Date: 20221227
  Transmission Date: 20230112
  Serious: Yes (Hospitalization, Other)
  Sender: FDA-Public Use
  Company Number: CA-VIIV HEALTHCARE LIMITED-CA2022186618

PATIENT
  Sex: Female

DRUGS (2)
  1. RILPIVIRINE [Suspect]
     Active Substance: RILPIVIRINE
     Indication: HIV infection
     Dosage: UNK (600 MG) CABOTEGRAVIR INJECTION AND (900 MG) RILPIVIRINE INJECTION
     Route: 030
     Dates: start: 20220130
  2. CABOTEGRAVIR [Suspect]
     Active Substance: CABOTEGRAVIR
     Indication: HIV infection
     Dosage: UNK (600 MG) CABOTEGRAVIR INJECTION AND (900 MG) RILPIVIRINE INJECTION
     Route: 030
     Dates: start: 20220130

REACTIONS (1)
  - Pneumonia [Unknown]
